FAERS Safety Report 17843625 (Version 1)
Quarter: 2020Q2

REPORT INFORMATION
  Report Type: Spontaneous
  Country: CA (occurrence: CA)
  Receive Date: 20200531
  Receipt Date: 20200531
  Transmission Date: 20200714
  Serious: Yes (Hospitalization)
  Sender: FDA-Public Use
  Company Number: CA-ROCHE-2608415

PATIENT
  Age: 81 Year
  Sex: Female

DRUGS (11)
  1. AZITHROMYCIN ANHYDROUS. [Concomitant]
     Active Substance: AZITHROMYCIN ANHYDROUS
  2. IRBESARTAN. [Concomitant]
     Active Substance: IRBESARTAN
     Route: 065
  3. RITUXIMAB. [Suspect]
     Active Substance: RITUXIMAB
     Indication: RHEUMATOID ARTHRITIS
     Route: 042
  4. FOLIC ACID. [Concomitant]
     Active Substance: FOLIC ACID
  5. FOLIC ACID. [Concomitant]
     Active Substance: FOLIC ACID
  6. GABAPENTIN. [Concomitant]
     Active Substance: GABAPENTIN
  7. ACETAMINOPHEN. [Concomitant]
     Active Substance: ACETAMINOPHEN
     Indication: PREMEDICATION
     Route: 048
  8. OXYCODONE HYDROCHLORIDE. [Concomitant]
     Active Substance: OXYCODONE HYDROCHLORIDE
  9. DIPHENHYDRAMINE. [Concomitant]
     Active Substance: DIPHENHYDRAMINE
     Indication: PREMEDICATION
     Route: 048
  10. METHOTREXATE. [Suspect]
     Active Substance: METHOTREXATE
     Indication: RHEUMATOID ARTHRITIS
     Route: 048
  11. AVAPRO [Concomitant]
     Active Substance: IRBESARTAN
     Route: 065

REACTIONS (10)
  - Dementia [Not Recovered/Not Resolved]
  - Lung disorder [Not Recovered/Not Resolved]
  - Peripheral swelling [Not Recovered/Not Resolved]
  - Pulmonary congestion [Not Recovered/Not Resolved]
  - Accidental overdose [Unknown]
  - Pain in extremity [Not Recovered/Not Resolved]
  - Weight increased [Not Recovered/Not Resolved]
  - Oesophageal pain [Not Recovered/Not Resolved]
  - Arthralgia [Not Recovered/Not Resolved]
  - Cough [Not Recovered/Not Resolved]
